FAERS Safety Report 8838835 (Version 1)
Quarter: 2012Q4

REPORT INFORMATION
  Report Type: Spontaneous
  Country: US (occurrence: None)
  Receive Date: 20121011
  Receipt Date: 20121011
  Transmission Date: 20130627
  Serious: Yes (Hospitalization)
  Sender: FDA-Public Use
  Company Number: None

PATIENT
  Age: 67 Year
  Sex: Female
  Weight: 65.77 kg

DRUGS (1)
  1. ACETAZOLAMIDE [Suspect]
     Indication: HIGH ALTITUDE ILLNESS
     Dates: start: 20120806, end: 20120817

REACTIONS (10)
  - Cognitive disorder [None]
  - Memory impairment [None]
  - Confusional state [None]
  - Dehydration [None]
  - Decreased appetite [None]
  - Weight decreased [None]
  - Muscular weakness [None]
  - Fatigue [None]
  - Dyspnoea [None]
  - Somnolence [None]
